FAERS Safety Report 15092783 (Version 1)
Quarter: 2018Q2

REPORT INFORMATION
  Report Type: Spontaneous
  Country: DE (occurrence: DE)
  Receive Date: 20180629
  Receipt Date: 20180629
  Transmission Date: 20180711
  Serious: Yes (Congenital Anomaly, Other)
  Sender: FDA-Public Use
  Company Number: PHHY2018DE029035

PATIENT
  Sex: Female
  Weight: 2.53 kg

DRUGS (5)
  1. RAMIPRIL. [Suspect]
     Active Substance: RAMIPRIL
     Indication: FOETAL EXPOSURE DURING PREGNANCY
     Dosage: MATERNAL DOSE: 5 MG
     Route: 064
  2. FLUTICASONE. [Suspect]
     Active Substance: FLUTICASONE
     Indication: FOETAL EXPOSURE DURING PREGNANCY
     Route: 064
  3. SALBUTAMOL [Suspect]
     Active Substance: ALBUTEROL
     Indication: FOETAL EXPOSURE DURING PREGNANCY
     Route: 064
  4. SALMETEROL [Suspect]
     Active Substance: SALMETEROL
     Indication: FOETAL EXPOSURE DURING PREGNANCY
     Route: 064
  5. LEVOTHYROXINE SODIUM. [Suspect]
     Active Substance: LEVOTHYROXINE SODIUM
     Indication: FOETAL EXPOSURE DURING PREGNANCY
     Route: 064

REACTIONS (11)
  - Hypertelorism of orbit [Unknown]
  - Atrial septal defect [Unknown]
  - Patent ductus arteriosus [Unknown]
  - Premature baby [Unknown]
  - Dysmorphism [Unknown]
  - Retrognathia [Unknown]
  - Foetal exposure during pregnancy [Unknown]
  - Infantile apnoea [Unknown]
  - Hypotonia [Unknown]
  - Tricuspid valve incompetence [Unknown]
  - Bradycardia neonatal [Unknown]
